FAERS Safety Report 7827569-9 (Version None)
Quarter: 2011Q4

REPORT INFORMATION
  Report Type: 
  Country: None (occurrence: None)
  Receive Date: 20111018
  Receipt Date: 20111004
  Transmission Date: 20120403
  Serious: Yes (Other)
  Sender: FDA-Public Use
  Company Number: 2011GW000528

PATIENT
  Age: 30 Year
  Sex: Female
  Weight: 86.1834 kg

DRUGS (1)
  1. MAXAIR [Suspect]
     Indication: ASTHMA
     Dosage: ; PRN; INH
     Route: 055
     Dates: start: 20100601

REACTIONS (2)
  - BREAST CANCER [None]
  - ASTHMA [None]
